FAERS Safety Report 5927980-7 (Version None)
Quarter: 2008Q4

REPORT INFORMATION
  Report Type: 
  Country: None (occurrence: None)
  Receive Date: 20081023
  Receipt Date: 20081015
  Transmission Date: 20090506
  Serious: Yes (Other)
  Sender: FDA-Public Use
  Company Number: JP-ASTRAZENECA-2008AP07416

PATIENT
  Age: 54 Year
  Sex: Female
  Weight: 52 kg

DRUGS (3)
  1. CRESTOR [Suspect]
     Indication: TYPE IIA HYPERLIPIDAEMIA
     Route: 048
     Dates: start: 20080308, end: 20080424
  2. CRESTOR [Suspect]
     Route: 048
     Dates: start: 20080510, end: 20080515
  3. CRESTOR [Suspect]
     Route: 048
     Dates: start: 20080801, end: 20080918

REACTIONS (2)
  - VERTIGO [None]
  - VOMITING [None]
